FAERS Safety Report 21955762 (Version 1)
Quarter: 2023Q1

REPORT INFORMATION
  Report Type: Spontaneous
  Country: US (occurrence: US)
  Receive Date: 20230206
  Receipt Date: 20230206
  Transmission Date: 20230418
  Serious: Yes (Other)
  Sender: FDA-Public Use
  Company Number: US-SA-SAC20230203000631

PATIENT
  Sex: Female

DRUGS (3)
  1. AUBAGIO [Suspect]
     Active Substance: TERIFLUNOMIDE
     Indication: Multiple sclerosis
     Dosage: 14 MG, QD
     Route: 048
     Dates: start: 201612
  2. ZETIA [Concomitant]
     Active Substance: EZETIMIBE
  3. ABREVA [Concomitant]
     Active Substance: DOCOSANOL

REACTIONS (8)
  - Cervical spinal stenosis [Recovering/Resolving]
  - Chills [Recovering/Resolving]
  - Depressed mood [Recovered/Resolved]
  - Fatigue [Recovering/Resolving]
  - Oral herpes [Recovering/Resolving]
  - Nasopharyngitis [Recovering/Resolving]
  - Hypoaesthesia [Unknown]
  - Diarrhoea [Recovering/Resolving]
